FAERS Safety Report 8973353 (Version 1)
Quarter: 2012Q4

REPORT INFORMATION
  Report Type: 
  Country: US (occurrence: US)
  Receive Date: 20121218
  Receipt Date: 20121218
  Transmission Date: 20130627
  Serious: No
  Sender: FDA-Public Use
  Company Number: US-BRISTOL-MYERS SQUIBB COMPANY-16941221

PATIENT
  Age: 54 Year
  Sex: Male
  Weight: 68 kg

DRUGS (2)
  1. ABILIFY [Suspect]
     Indication: DEPRESSION
  2. PAXIL [Suspect]

REACTIONS (7)
  - Restlessness [Unknown]
  - Insomnia [Unknown]
  - Myalgia [Unknown]
  - Tardive dyskinesia [Unknown]
  - Gait disturbance [Unknown]
  - Muscular weakness [Unknown]
  - Reading disorder [Unknown]
